FAERS Safety Report 13563633 (Version 3)
Quarter: 2017Q3

REPORT INFORMATION
  Report Type: Spontaneous
  Country: IT (occurrence: IT)
  Receive Date: 20170519
  Receipt Date: 20170808
  Transmission Date: 20171127
  Serious: Yes (Death)
  Sender: FDA-Public Use
  Company Number: IT-009507513-1705ITA003733

PATIENT
  Age: 68 Year
  Sex: Male
  Weight: 56 kg

DRUGS (1)
  1. KEYTRUDA [Suspect]
     Active Substance: PEMBROLIZUMAB
     Indication: PLEURAL MESOTHELIOMA MALIGNANT
     Dosage: 200 MG, EVERY 21 DAYS (CYCLICAL)
     Route: 042
     Dates: start: 20170323, end: 20170323

REACTIONS (3)
  - Intentional product use issue [Fatal]
  - Interstitial lung disease [Fatal]
  - Death [Fatal]

NARRATIVE: CASE EVENT DATE: 20170323
